FAERS Safety Report 12616426 (Version 2)
Quarter: 2016Q3

REPORT INFORMATION
  Report Type: Spontaneous
  Country: US (occurrence: US)
  Receive Date: 20160802
  Receipt Date: 20160803
  Transmission Date: 20161109
  Serious: Yes (Other)
  Sender: FDA-Public Use
  Company Number: US-PFIZER INC-2849118

PATIENT
  Age: 42 Year
  Sex: Female
  Weight: 92 kg

DRUGS (1)
  1. VANCOMYCIN HCL [Suspect]
     Active Substance: VANCOMYCIN HYDROCHLORIDE
     Indication: EVIDENCE BASED TREATMENT
     Dosage: 1500 MG, 3 DOSES, FREQ: 1 HOUR, INTERVAL: 12
     Route: 042
     Dates: start: 20150419, end: 20150420

REACTIONS (1)
  - Antibiotic level above therapeutic [Unknown]

NARRATIVE: CASE EVENT DATE: 20150421
